FAERS Safety Report 22090002 (Version 1)
Quarter: 2023Q1

REPORT INFORMATION
  Report Type: Spontaneous
  Country: US (occurrence: None)
  Receive Date: 20230313
  Receipt Date: 20230313
  Transmission Date: 20230417
  Serious: No
  Sender: FDA-Public Use
  Company Number: None

PATIENT
  Age: 76 Year
  Sex: Female
  Weight: 68.72 kg

DRUGS (15)
  1. CAPECITABINE [Suspect]
     Active Substance: CAPECITABINE
     Indication: Breast cancer female
     Dosage: OTHER FREQUENCY : 2W, 1W OFF;?
     Route: 048
  2. ASCORBIC ACID [Concomitant]
     Active Substance: ASCORBIC ACID
  3. CALCIUM CITRATE [Concomitant]
     Active Substance: CALCIUM CITRATE
  4. MINERALS\VITAMINS [Concomitant]
     Active Substance: MINERALS\VITAMINS
  5. JARDIANCE [Concomitant]
     Active Substance: EMPAGLIFLOZIN
  6. LOMOTIL [Concomitant]
     Active Substance: ATROPINE SULFATE\DIPHENOXYLATE HYDROCHLORIDE
  7. MAGOX [Concomitant]
  8. METFORMIN [Concomitant]
     Active Substance: METFORMIN HYDROCHLORIDE
  9. MOMEMETASONE FUROATE NASAL SUSPENSION [Concomitant]
  10. OZEMPIC [Concomitant]
     Active Substance: SEMAGLUTIDE
  11. REPAGLINIDE [Concomitant]
     Active Substance: REPAGLINIDE
  12. RESTASIS OPHTHALMIC EMULSION SILVER [Concomitant]
  13. SULFADIAZINE EXTERNAL CREAM [Concomitant]
  14. VITAMIN D3 [Concomitant]
     Active Substance: CHOLECALCIFEROL
  15. XGEVA SUBCUTANEOUS [Concomitant]

REACTIONS (1)
  - Hospice care [None]
